FAERS Safety Report 6988158-1 (Version None)
Quarter: 2010Q3

REPORT INFORMATION
  Report Type: 
  Country: None (occurrence: None)
  Receive Date: 20100916
  Receipt Date: 20100910
  Transmission Date: 20110219
  Serious: Yes (Hospitalization, Disabling)
  Sender: FDA-Public Use
  Company Number: PHHO2010AU11333

PATIENT
  Sex: Male
  Weight: 90.6 kg

DRUGS (3)
  1. AEB071 AEB+GELCAP [Suspect]
     Indication: RENAL TRANSPLANT
     Dosage: 200 MG, BID
     Route: 048
     Dates: start: 20090825
  2. EVEROLIMUS [Suspect]
     Indication: RENAL TRANSPLANT
     Dosage: 7 MG, BID
     Route: 048
     Dates: start: 20090825
  3. PREDNISONE [Concomitant]
     Indication: RENAL TRANSPLANT
     Dosage: 10 MG / DAY
     Route: 048
     Dates: start: 20090827

REACTIONS (1)
  - PYREXIA [None]
